FAERS Safety Report 4706101-2 (Version None)
Quarter: 2005Q2

REPORT INFORMATION
  Report Type: 
  Country: None (occurrence: None)
  Receive Date: 20050627
  Receipt Date: 20041101
  Transmission Date: 20051028
  Serious: Yes (Other)
  Sender: FDA-Public Use
  Company Number: US-JNJFOC-20041100333

PATIENT
  Age: 37 Year
  Sex: Male

DRUGS (1)
  1. FENTANYL (FENTANYL) UNSPECIFIED [Suspect]
     Indication: INTENTIONAL MISUSE
     Dosage: ORAL
     Route: 048

REACTIONS (1)
  - DRUG ABUSER [None]
